FAERS Safety Report 17223598 (Version 1)
Quarter: 2020Q3

REPORT INFORMATION
  Report Type: Spontaneous
  Country: CA (occurrence: CA)
  Receive Date: 20200102
  Receipt Date: 20200102
  Transmission Date: 20201105
  Serious: Yes (Other)
  Sender: FDA-Public Use
  Company Number: CA-FRESENIUS KABI-FK201914710

PATIENT
  Age: 37 Year
  Sex: Female

DRUGS (11)
  1. WITHANIA SOMNIFERA ROOT. [Suspect]
     Active Substance: WITHANIA SOMNIFERA ROOT
     Indication: ABDOMINAL DISCOMFORT
     Route: 048
  2. ALLIUM SATIVUM/VACCINIUM MYRTILLUS/ZINGIBER OFFICINALE/CAPSICUM ANNUUM/CRATAEGUS SPP. [Suspect]
     Active Substance: HERBALS
     Indication: ABDOMINAL DISCOMFORT
     Dosage: UNKNOWN
     Route: 065
  3. RIVAROXABAN [Suspect]
     Active Substance: RIVAROXABAN
     Indication: THROMBOSIS PROPHYLAXIS
     Dosage: UNKNOWN
     Route: 048
  4. SODIUM BICARBONATE. [Suspect]
     Active Substance: SODIUM BICARBONATE
     Indication: ABDOMINAL DISCOMFORT
     Dosage: THREE TREATMENTS 1,25 ML
     Route: 042
  5. VITAMIN B COMPLEX [Suspect]
     Active Substance: CYANOCOBALAMIN\DEXPANTHENOL\NIACINAMIDE\PYRIDOXINE HYDROCHLORIDE\RIBOFLAVIN 5^-PHOSPHATE SODIUM\THIAMINE HYDROCHLORIDE\VITAMIN B COMPLEX
     Indication: ABDOMINAL DISCOMFORT
     Dosage: 3 TREATMENTS 0,50 TO 1,00 ML
     Route: 042
  6. COPPER [Suspect]
     Active Substance: COPPER
     Indication: ABDOMINAL DISCOMFORT
     Dosage: UNKNOWN
     Route: 048
  7. ACETYLCYSTEINE (MANUFACTURER UNKNOWN) [Suspect]
     Active Substance: ACETYLCYSTEINE
     Indication: ABDOMINAL DISCOMFORT
     Dosage: 3 TREATMENTS 0,5G TO 2,75 G
     Route: 042
  8. ASCORBIC ACID. [Suspect]
     Active Substance: ASCORBIC ACID
     Indication: ABDOMINAL DISCOMFORT
     Dosage: 3 TREATMENTS 3,75 TO 7,25 G
     Route: 042
  9. MAGNESIUM [Suspect]
     Active Substance: MAGNESIUM
     Indication: ABDOMINAL DISCOMFORT
     Dosage: 3 TREATMENTS 0,25 G
     Route: 042
  10. LEVOCARNITINE HYDROCHLORIDE [Suspect]
     Active Substance: LEVOCARNITINE HYDROCHLORIDE
     Indication: ABDOMINAL DISCOMFORT
     Dosage: 3 TREATMENTS 1,25 TO 3,75 G
     Route: 042
  11. SELENIUM [Suspect]
     Active Substance: SELENIUM
     Indication: ABDOMINAL DISCOMFORT
     Dosage: 100 MCG TO 200 MCG
     Route: 048

REACTIONS (1)
  - Drug-induced liver injury [Recovered/Resolved]
